FAERS Safety Report 7885336-4 (Version None)
Quarter: 2011Q4

REPORT INFORMATION
  Report Type: 
  Country: None (occurrence: None)
  Receive Date: 20111102
  Receipt Date: 20111027
  Transmission Date: 20120403
  Serious: Yes (Hospitalization, Other)
  Sender: FDA-Public Use
  Company Number: US-SANOFI-AVENTIS-2011SA071066

PATIENT
  Age: 75 Year
  Sex: Male
  Weight: 91 kg

DRUGS (9)
  1. PLAVIX [Suspect]
     Indication: STENT PLACEMENT
     Route: 048
  2. PLAVIX [Suspect]
     Route: 048
     Dates: start: 20090101
  3. PLAVIX [Suspect]
     Route: 048
     Dates: start: 20090101
  4. SIMVASTATIN [Concomitant]
  5. ASPIRIN [Concomitant]
  6. GLIMEPIRIDE [Concomitant]
  7. METOPROLOL TARTRATE [Concomitant]
     Dates: end: 20111001
  8. NEBIVOLOL HCL [Concomitant]
     Dates: start: 20111001
  9. PLAVIX [Suspect]
     Route: 048

REACTIONS (11)
  - LETHARGY [None]
  - DYSPNOEA [None]
  - FATIGUE [None]
  - ADVERSE EVENT [None]
  - PERIPHERAL ARTERIAL OCCLUSIVE DISEASE [None]
  - FEELING HOT [None]
  - NAUSEA [None]
  - DECREASED APPETITE [None]
  - ABDOMINAL PAIN [None]
  - DRUG INEFFECTIVE [None]
  - VISION BLURRED [None]
